FAERS Safety Report 6159622-2 (Version None)
Quarter: 2009Q2

REPORT INFORMATION
  Report Type: 
  Country: None (occurrence: None)
  Receive Date: 20090420
  Receipt Date: 20090413
  Transmission Date: 20091009
  Serious: Yes (Hospitalization)
  Sender: FDA-Public Use
  Company Number: ES-JNJFOC-20080301337

PATIENT
  Age: 38 Year
  Sex: Female
  Weight: 60 kg

DRUGS (3)
  1. TOPAMAX [Suspect]
     Route: 048
  2. TOPAMAX [Suspect]
     Indication: DEPRESSION
     Route: 048
  3. CORTISONE [Concomitant]
     Indication: HYPERSENSITIVITY

REACTIONS (5)
  - ATAXIA [None]
  - HEPATITIS [None]
  - LOSS OF CONSCIOUSNESS [None]
  - POLYNEUROPATHY [None]
  - TRANSAMINASES INCREASED [None]
